FAERS Safety Report 23034810 (Version 2)
Quarter: 2024Q1

REPORT INFORMATION
  Report Type: Other
  Country: None (occurrence: BE)
  Receive Date: 20231005
  Receipt Date: 20240105
  Transmission Date: 20240409
  Serious: Yes (Death, Hospitalization)
  Sender: FDA-Public Use
  Company Number: BE-SIGA Technologies, Inc.-2146753

PATIENT
  Age: 53 Year
  Sex: Male

DRUGS (5)
  1. TPOXX [Suspect]
     Active Substance: TECOVIRIMAT
     Indication: Monkeypox
     Route: 048
  2. BICTEGRAVIR [Concomitant]
     Active Substance: BICTEGRAVIR
     Route: 048
  3. EMTRICITABINE [Concomitant]
     Active Substance: EMTRICITABINE
     Route: 048
  4. TENOFOVIR ALAFENAMIDE [Concomitant]
     Active Substance: TENOFOVIR ALAFENAMIDE
     Route: 048
  5. GANCICLOVIR [Concomitant]
     Active Substance: GANCICLOVIR
     Route: 042

REACTIONS (1)
  - Drug resistance [Not Recovered/Not Resolved]
